FAERS Safety Report 4818211-X (Version None)
Quarter: 2005Q4

REPORT INFORMATION
  Report Type: 
  Country: None (occurrence: None)
  Receive Date: 20051101
  Receipt Date: 20051101
  Transmission Date: 20060501
  Serious: Yes (Hospitalization)
  Sender: FDA-Public Use
  Company Number: None

PATIENT
  Age: 48 Year
  Sex: Female
  Weight: 80.2867 kg

DRUGS (9)
  1. DOCETAXEL [Suspect]
     Indication: BREAST CANCER
     Dosage: 138-140 MG   Q 4 WEEKS   IV DRIP
     Route: 041
     Dates: start: 20050805, end: 20051001
  2. CAPECITABINE [Suspect]
     Indication: BREAST CANCER
     Dosage: 1800 MG   BID X 14 DAYS  PO
     Route: 048
     Dates: start: 20050806, end: 20051018
  3. IBUPROFEN [Concomitant]
  4. PEPCID [Concomitant]
  5. IMODIUM [Concomitant]
  6. BENADRYL [Concomitant]
  7. ZOFRAN [Concomitant]
  8. COMPAZINE [Concomitant]
  9. ATIVAN [Concomitant]

REACTIONS (1)
  - FEBRILE NEUTROPENIA [None]
